FAERS Safety Report 8985115 (Version 1)
Quarter: 2012Q4

REPORT INFORMATION
  Report Type: 
  Country: US (occurrence: US)
  Receive Date: 20121226
  Receipt Date: 20121226
  Transmission Date: 20130627
  Serious: No
  Sender: FDA-Public Use
  Company Number: US-009507513-1212USA009569

PATIENT
  Sex: Male

DRUGS (3)
  1. VICTRELIS [Suspect]
  2. PEGASYS [Suspect]
  3. RIBASPHERE [Suspect]

REACTIONS (1)
  - Malaise [Recovered/Resolved]
